FAERS Safety Report 7301907-8 (Version None)
Quarter: 2011Q1

REPORT INFORMATION
  Report Type: 
  Country: None (occurrence: None)
  Receive Date: 20110218
  Receipt Date: 20110210
  Transmission Date: 20110831
  Serious: Yes (Other)
  Sender: FDA-Public Use
  Company Number: JP-ROCHE-750331

PATIENT
  Sex: Male

DRUGS (39)
  1. PREDONINE [Concomitant]
     Route: 048
     Dates: start: 20090613, end: 20090616
  2. PREDONINE [Concomitant]
     Route: 048
     Dates: start: 20091003, end: 20091006
  3. PREDONINE [Concomitant]
     Route: 048
     Dates: start: 20100115, end: 20100118
  4. PREDONINE [Concomitant]
     Route: 048
     Dates: start: 20100924, end: 20100927
  5. TOCILIZUMAB [Suspect]
     Indication: CASTLEMAN'S DISEASE
     Route: 042
     Dates: start: 20081031, end: 20090306
  6. PREDONINE [Concomitant]
     Route: 048
     Dates: start: 20091113, end: 20091116
  7. PREDONINE [Concomitant]
     Route: 048
     Dates: start: 20100402, end: 20100405
  8. PREDONINE [Concomitant]
     Route: 048
     Dates: start: 20100611, end: 20100614
  9. TOCILIZUMAB [Suspect]
     Route: 042
     Dates: start: 20090319, end: 20100104
  10. PREDONINE [Concomitant]
     Route: 048
     Dates: start: 20090530, end: 20090602
  11. PREDONINE [Concomitant]
     Route: 048
     Dates: start: 20090627, end: 20090630
  12. PREDONINE [Concomitant]
     Route: 048
     Dates: start: 20090822, end: 20090825
  13. PREDONINE [Concomitant]
     Route: 048
     Dates: start: 20100205, end: 20100208
  14. PREDONINE [Concomitant]
     Route: 048
     Dates: start: 20100723, end: 20100726
  15. PREDONINE [Concomitant]
     Route: 048
     Dates: start: 20100910, end: 20100913
  16. PREDONINE [Concomitant]
     Route: 048
     Dates: start: 20090905, end: 20090908
  17. PREDONINE [Concomitant]
     Route: 048
     Dates: start: 20091017, end: 20091020
  18. PREDONINE [Concomitant]
     Route: 048
     Dates: start: 20091030, end: 20091102
  19. PREDONINE [Concomitant]
     Route: 048
     Dates: start: 20100625, end: 20100628
  20. PREDONINE [Concomitant]
     Route: 048
     Dates: start: 20100827, end: 20100830
  21. TOCILIZUMAB [Suspect]
     Route: 042
     Dates: start: 20100114, end: 20101202
  22. PREDONINE [Concomitant]
     Route: 048
     Dates: start: 20100305, end: 20100308
  23. PREDONINE [Concomitant]
     Route: 048
     Dates: start: 20100414, end: 20100417
  24. TOLBUTAMIDE [Suspect]
     Indication: DIABETES MELLITUS
     Route: 048
  25. PREDONINE [Concomitant]
     Route: 048
     Dates: start: 20090919, end: 20090922
  26. PREDONINE [Concomitant]
     Route: 048
     Dates: start: 20100924, end: 20100927
  27. PREDONINE [Concomitant]
     Route: 048
     Dates: start: 20090725, end: 20090728
  28. PREDONINE [Concomitant]
     Route: 048
     Dates: start: 20091127, end: 20091130
  29. PREDONINE [Concomitant]
     Route: 048
     Dates: start: 20100319, end: 20100322
  30. PREDONINE [Concomitant]
     Route: 048
     Dates: start: 20100429, end: 20100502
  31. PREDONINE [Concomitant]
     Route: 048
     Dates: start: 20100528, end: 20100531
  32. TOCILIZUMAB [Suspect]
     Route: 042
     Dates: start: 20110107, end: 20110204
  33. PREDONINE [Concomitant]
     Route: 048
     Dates: start: 20090711, end: 20090714
  34. PREDONINE [Concomitant]
     Route: 048
     Dates: start: 20090808, end: 20090811
  35. PREDONINE [Concomitant]
     Route: 048
     Dates: start: 20091211, end: 20091214
  36. PREDONINE [Concomitant]
     Route: 048
     Dates: start: 20100514, end: 20100517
  37. PREDONINE [Concomitant]
     Route: 048
     Dates: start: 20100709, end: 20100712
  38. PREDONINE [Concomitant]
     Route: 048
     Dates: start: 20100806, end: 20100809
  39. PREDONINE [Concomitant]
     Route: 048
     Dates: start: 20100910, end: 20100913

REACTIONS (8)
  - HYPOGLYCAEMIA [None]
  - HYPERKALAEMIA [None]
  - ANTIBODY TEST POSITIVE [None]
  - HYPERTENSION [None]
  - RENAL IMPAIRMENT [None]
  - HYPERTRIGLYCERIDAEMIA [None]
  - AZOTAEMIA [None]
  - BLOOD URIC ACID INCREASED [None]
